FAERS Safety Report 6239721-7 (Version None)
Quarter: 2009Q2

REPORT INFORMATION
  Report Type: 
  Country: None (occurrence: None)
  Receive Date: 20090619
  Receipt Date: 20090603
  Transmission Date: 20091009
  Serious: Yes (Death, Hospitalization)
  Sender: FDA-Public Use
  Company Number: 8047670

PATIENT
  Sex: Male

DRUGS (1)
  1. PREDNISOLONE [Suspect]
     Indication: LANGERHANS' CELL GRANULOMATOSIS

REACTIONS (7)
  - DISEASE PROGRESSION [None]
  - LANGERHANS' CELL GRANULOMATOSIS [None]
  - MALIGNANT FIBROUS HISTIOCYTOMA [None]
  - MUCORMYCOSIS [None]
  - NEUTROPENIA [None]
  - NO THERAPEUTIC RESPONSE [None]
  - PNEUMONIA [None]
